FAERS Safety Report 14598451 (Version 2)
Quarter: 2022Q2

REPORT INFORMATION
  Report Type: Spontaneous
  Country: US (occurrence: US)
  Receive Date: 20180305
  Receipt Date: 20220404
  Transmission Date: 20220721
  Serious: Yes (Disabling)
  Sender: FDA-Public Use
  Company Number: US-TEVA-2018-US-866179

PATIENT
  Age: 63 Year
  Sex: Female

DRUGS (10)
  1. DOCETAXEL [Suspect]
     Active Substance: DOCETAXEL
     Indication: Breast cancer female
     Dosage: NUMBER OF CYCLES -06, EVERY 3 WEEKS,DOCETAXEL FOR 1 HOUR THEN CARBOPLATIN FOR 1 HOUR
     Route: 065
     Dates: start: 20130131, end: 20130517
  2. TAXOTERE [Suspect]
     Active Substance: DOCETAXEL
     Indication: Breast cancer female
     Dosage: NUMBER OF CYCLES -06, EVERY 3 WEEKS,DOCETAXEL FOR 1 HOUR THEN CARBOPLATIN FOR 1 HOUR
     Route: 065
     Dates: start: 20130131, end: 20130517
  3. CARBOPLATIN [Concomitant]
     Active Substance: CARBOPLATIN
     Indication: Breast cancer female
     Dosage: NUMBER OF CYCLES -06, EVERY 3 WEEKS,DOCETAXEL FOR 1 HOUR THEN CARBOPLATIN FOR 1 HOUR
     Route: 065
     Dates: start: 20130131, end: 20130517
  4. TRAMADOL [Concomitant]
     Active Substance: TRAMADOL
     Route: 065
     Dates: start: 20071101
  5. TESSALON [Concomitant]
     Active Substance: BENZONATATE
     Route: 065
     Dates: start: 20071101
  6. PENICILLIN [Concomitant]
     Active Substance: PENICILLIN
     Route: 065
     Dates: start: 20071101
  7. OXYCODONE [Concomitant]
     Active Substance: OXYCODONE
     Route: 065
     Dates: start: 20071101
  8. VOLTAREN [Concomitant]
     Active Substance: DICLOFENAC SODIUM
     Route: 065
     Dates: start: 20071101
  9. PREDNISONE [Concomitant]
     Active Substance: PREDNISONE
     Route: 065
     Dates: start: 20071101
  10. PHENDIMETRAZINE [Concomitant]
     Active Substance: PHENDIMETRAZINE
     Route: 065
     Dates: start: 20071101

REACTIONS (2)
  - Alopecia areata [Not Recovered/Not Resolved]
  - Madarosis [Not Recovered/Not Resolved]

NARRATIVE: CASE EVENT DATE: 20131117
